FAERS Safety Report 24251335 (Version 1)
Quarter: 2024Q3

REPORT INFORMATION
  Report Type: Spontaneous
  Country: PL (occurrence: PL)
  Receive Date: 20240826
  Receipt Date: 20240826
  Transmission Date: 20241016
  Serious: Yes (Life-Threatening, Hospitalization, Other)
  Sender: MERCK
  Company Number: PL-009507513-2408POL006983

PATIENT
  Age: 83 Year
  Sex: Male

DRUGS (8)
  1. KEYTRUDA [Suspect]
     Active Substance: PEMBROLIZUMAB
     Indication: Non-small cell lung cancer
     Dosage: EVERY 21 DAYS
     Route: 042
     Dates: start: 20220408, end: 20240402
  2. POLVERTIC [Concomitant]
     Dosage: 2 X 1 TABLET, FOR MANY YEARS
  3. METOPROLOL TARTRATE [Concomitant]
     Active Substance: METOPROLOL TARTRATE
     Dosage: 50 MILLIGRAM, 2 X 1 TABLET
  4. PIRACETAM [Concomitant]
     Active Substance: PIRACETAM
     Dosage: 1100 MILLIGRAM, 1 X 1 TABLET
  5. ASMENOL [Concomitant]
     Dosage: 1 X 1 TABLET
  6. INDAPAMIDE\PERINDOPRIL ARGININE [Concomitant]
     Active Substance: INDAPAMIDE\PERINDOPRIL ARGININE
     Dosage: 1X 1 TABLET
  7. BENZOYL PEROXIDE [Concomitant]
     Active Substance: BENZOYL PEROXIDE
     Dosage: 2X DAY
  8. BUDESONIDE [Concomitant]
     Active Substance: BUDESONIDE
     Dosage: 2X DAY

REACTIONS (21)
  - Interstitial lung disease [Recovered/Resolved with Sequelae]
  - Clostridium difficile infection [Unknown]
  - Red blood cell count decreased [Unknown]
  - Haemoglobin decreased [Unknown]
  - Haematocrit decreased [Unknown]
  - Mean cell haemoglobin decreased [Unknown]
  - Reticulocyte percentage increased [Unknown]
  - Reticulocyte count increased [Unknown]
  - Red cell distribution width increased [Unknown]
  - Platelet distribution width increased [Unknown]
  - Blood potassium decreased [Unknown]
  - Blood chloride decreased [Unknown]
  - C-reactive protein increased [Unknown]
  - Lymphocyte count decreased [Unknown]
  - Blood pH increased [Unknown]
  - Blood bicarbonate increased [Unknown]
  - Fluid retention [Unknown]
  - Base excess increased [Unknown]
  - Alanine aminotransferase increased [Unknown]
  - Reticulocyte haemoglobin decreased [Unknown]
  - Blood creatinine increased [Unknown]

NARRATIVE: CASE EVENT DATE: 20240414
